FAERS Safety Report 8609692-4 (Version None)
Quarter: 2012Q3

REPORT INFORMATION
  Report Type: 
  Country: None (occurrence: None)
  Receive Date: 20120821
  Receipt Date: 20120821
  Transmission Date: 20120928
  Serious: Yes (Hospitalization)
  Sender: FDA-Public Use
  Company Number: FR-ABBOTT-12P-056-0957875-00

PATIENT
  Sex: Male

DRUGS (1)
  1. FENOFIBRATE [Suspect]
     Indication: DYSLIPIDAEMIA
     Route: 048
     Dates: start: 20120301, end: 20120626

REACTIONS (5)
  - VOMITING [None]
  - AGRANULOCYTOSIS [None]
  - CHILLS [None]
  - PYREXIA [None]
  - DIARRHOEA [None]
